FAERS Safety Report 12280807 (Version 1)
Quarter: 2016Q2

REPORT INFORMATION
  Report Type: Spontaneous
  Country: US (occurrence: US)
  Receive Date: 20160419
  Receipt Date: 20160419
  Transmission Date: 20160815
  Serious: No
  Sender: FDA-Public Use
  Company Number: US-TEVA-592158USA

PATIENT
  Sex: Female

DRUGS (1)
  1. ACICLOVIR [Suspect]
     Active Substance: ACYCLOVIR
     Indication: ORAL HERPES
     Dosage: 3200 MILLIGRAM DAILY;
     Route: 048

REACTIONS (3)
  - Tremor [Unknown]
  - Gait disturbance [Unknown]
  - Eye movement disorder [Unknown]
